FAERS Safety Report 20581001 (Version 1)
Quarter: 2022Q1

REPORT INFORMATION
  Report Type: Spontaneous
  Country: HU (occurrence: HU)
  Receive Date: 20220311
  Receipt Date: 20220311
  Transmission Date: 20220423
  Serious: Yes (Death, Hospitalization, Other)
  Sender: FDA-Public Use
  Company Number: HU-AMGEN-HUNSP2022039245

PATIENT
  Age: 6 Year
  Sex: Female

DRUGS (6)
  1. ROMIPLOSTIM [Suspect]
     Active Substance: ROMIPLOSTIM
     Indication: Immune thrombocytopenia
     Dosage: UNK
     Route: 065
  2. METHYLPREDNISOLONE [Concomitant]
     Active Substance: METHYLPREDNISOLONE
     Indication: Evans syndrome
  3. CYCLOSPORINE [Concomitant]
     Active Substance: CYCLOSPORINE
     Indication: Evans syndrome
  4. HUMAN IMMUNOGLOBULIN G [Concomitant]
     Active Substance: HUMAN IMMUNOGLOBULIN G
  5. AZATHIOPRINE [Concomitant]
     Active Substance: AZATHIOPRINE
  6. RITUXIMAB [Concomitant]
     Active Substance: RITUXIMAB

REACTIONS (9)
  - Cardiac arrest [Fatal]
  - Arrhythmia [Unknown]
  - Immune thrombocytopenia [Unknown]
  - Acute respiratory distress syndrome [Unknown]
  - Systemic lupus erythematosus [Not Recovered/Not Resolved]
  - Glomerulonephritis membranous [Unknown]
  - Myelodysplastic syndrome [Unknown]
  - Respiratory failure [Not Recovered/Not Resolved]
  - Jugular vein thrombosis [Unknown]

NARRATIVE: CASE EVENT DATE: 20190501
